FAERS Safety Report 21927442 (Version 1)
Quarter: 2023Q1

REPORT INFORMATION
  Report Type: Spontaneous
  Country: US (occurrence: US)
  Receive Date: 20230130
  Receipt Date: 20230130
  Transmission Date: 20230418
  Serious: No
  Sender: FDA-Public Use
  Company Number: US-TEVA-2023-US-2846782

PATIENT
  Age: 85 Year
  Sex: Female

DRUGS (1)
  1. FAMOTIDINE [Suspect]
     Active Substance: FAMOTIDINE
     Indication: Hiatus hernia
     Dosage: 20 MG
     Route: 065

REACTIONS (4)
  - Flatulence [Unknown]
  - Dry mouth [Unknown]
  - Drug intolerance [Unknown]
  - Product use in unapproved indication [Unknown]
